FAERS Safety Report 9790115 (Version 1)
Quarter: 2013Q4

REPORT INFORMATION
  Report Type: Spontaneous
  Country: US (occurrence: None)
  Receive Date: 20131230
  Receipt Date: 20131230
  Transmission Date: 20140711
  Serious: Yes (Hospitalization)
  Sender: FDA-Public Use
  Company Number: None

PATIENT
  Age: 64 Year
  Sex: Male
  Weight: 182 kg

DRUGS (1)
  1. INVANZ [Suspect]
     Indication: CELLULITIS
     Route: 042

REACTIONS (2)
  - Rash maculo-papular [None]
  - Blister [None]
